FAERS Safety Report 10361998 (Version 1)
Quarter: 2014Q1

REPORT INFORMATION
  Report Type: Spontaneous
  Country: US (occurrence: None)
  Receive Date: 20140306
  Receipt Date: 20140306
  Transmission Date: 20141002
  Serious: Yes (Other)
  Sender: FDA-Public Use
  Company Number: 163-21880-13052329

PATIENT
  Age: 64 Year
  Sex: Female
  Weight: 118 kg

DRUGS (24)
  1. REVLIMID [Suspect]
     Indication: PLASMA CELL MYELOMA
     Dosage: 25 MG , 21 IN 28 D, PO
     Route: 048
     Dates: start: 20121108, end: 2013
  2. REVLIMID [Suspect]
     Indication: THYROID CANCER
     Dosage: 25 MG , 21 IN 28 D, PO
     Route: 048
     Dates: start: 20121108, end: 2013
  3. CENTRUM COMPLETE (CENTRUM ) [Concomitant]
  4. MORPHINE SULFATE IR (MORHPHINE SULFATE) [Concomitant]
  5. VITAMIN D (ERGOCALCIFEROL) [Concomitant]
  6. DILAUDID (HYDROMORPHONE HYDROCHLORIDE) [Concomitant]
  7. COZAAR (LOSARTAN POTASSIUM) [Concomitant]
  8. SYNTRHROID (LEVOTHYROXINE SODIUM) [Concomitant]
  9. ZOMETA (ZOLEDRONIC ACID) [Concomitant]
  10. TRAMADOL ACETAMINOPHEN (ULTRACET) [Concomitant]
  11. ADVAIR DISKUS [Concomitant]
  12. ALLOPURINOL [Concomitant]
  13. TYLENOL 8 HOUR (PARACETAMOL) [Concomitant]
  14. SPIRIVA HANDIHALER (TIOTROPIUM BROMIDE) [Concomitant]
  15. POTASSIUM CL (POTASSIUM CHLORIDE) [Concomitant]
  16. ASPIRIN (ACETYLSALICYLIC ACID) [Concomitant]
  17. PROAIR HFA (SALBUTEROL SULFATE) [Concomitant]
  18. COLCHICINE [Concomitant]
  19. CORVITE FE (CORVITE) [Concomitant]
  20. KAOPECTATE [Concomitant]
  21. IMODIUM A-D (LOPERAMIDE HYDROCHLORIDE) [Concomitant]
  22. IBUPROFEN [Concomitant]
  23. AMITIZA (LUBIPROSTONE) [Concomitant]
  24. DEXAMETHASONE [Concomitant]

REACTIONS (27)
  - Swelling face [None]
  - Urine output decreased [None]
  - Local swelling [None]
  - Oedema peripheral [None]
  - Sleep apnoea syndrome [None]
  - Feeling cold [None]
  - Faecal incontinence [None]
  - Abnormal faeces [None]
  - Feeling hot [None]
  - Gait disturbance [None]
  - Drug dose omission [None]
  - Insomnia [None]
  - Pruritus [None]
  - Pain [None]
  - Fatigue [None]
  - Diarrhoea [None]
  - Constipation [None]
  - Asthenia [None]
  - Muscle spasms [None]
  - Tremor [None]
  - Oropharyngeal pain [None]
  - Chills [None]
  - Bone pain [None]
  - Contusion [None]
  - Burning sensation [None]
  - Abdominal pain lower [None]
  - Blister [None]
